FAERS Safety Report 18422120 (Version 1)
Quarter: 2020Q4

REPORT INFORMATION
  Report Type: Spontaneous
  Country: US (occurrence: US)
  Receive Date: 20201023
  Receipt Date: 20201023
  Transmission Date: 20210114
  Serious: No
  Sender: FDA-Public Use
  Company Number: US-MATRIXX INITIATIVES, INC.-2093065

PATIENT
  Age: 40 Year
  Sex: Female
  Weight: 72.73 kg

DRUGS (2)
  1. UNDISCLOSED MULTIPLE MEDICATIONS [Concomitant]
  2. ZICAM COLD REMEDY RAPIDMELTS [Suspect]
     Active Substance: HOMEOPATHICS\ZINC ACETATE\ZINC GLUCONATE
     Indication: NASOPHARYNGITIS
     Route: 048
     Dates: start: 20201017, end: 20201017

REACTIONS (6)
  - Dysgeusia [None]
  - Dry mouth [None]
  - Anosmia [None]
  - Throat irritation [None]
  - Ageusia [None]
  - Oral discomfort [None]
